FAERS Safety Report 5422793-7 (Version None)
Quarter: 2007Q3

REPORT INFORMATION
  Report Type: 
  Country: None (occurrence: None)
  Receive Date: 20070730
  Receipt Date: 20060710
  Transmission Date: 20080115
  Serious: Yes (Other)
  Sender: FDA-Public Use
  Company Number: 200613299BWH

PATIENT
  Age: 45 Year
  Sex: Female
  Weight: 68.0396 kg

DRUGS (1)
  1. AVELOX (MOXIFLOCACIN HYDROCHLORIDE) [Suspect]
     Indication: SINUSITIS
     Dosage: 400 MG, QD; ORAL
     Route: 048
     Dates: start: 20060511

REACTIONS (8)
  - ANAPHYLACTIC REACTION [None]
  - DYSPNOEA [None]
  - JOINT SWELLING [None]
  - PRURITUS [None]
  - RESPIRATORY DISTRESS [None]
  - SWELLING [None]
  - SWOLLEN TONGUE [None]
  - SYNCOPE [None]
